FAERS Safety Report 25380023 (Version 2)
Quarter: 2025Q3

REPORT INFORMATION
  Report Type: Spontaneous
  Country: US (occurrence: US)
  Receive Date: 20250530
  Receipt Date: 20250908
  Transmission Date: 20251021
  Serious: Yes (Hospitalization)
  Sender: DOMPE FARMACEUTICI
  Company Number: US-FARMAPROD-202504-1315

PATIENT
  Age: 76 Year
  Sex: Male
  Weight: 75.21 kg

DRUGS (11)
  1. OXERVATE [Suspect]
     Active Substance: CENEGERMIN-BKBJ
     Indication: Neurotrophic keratopathy
     Route: 047
     Dates: start: 20250410
  2. OXERVATE [Suspect]
     Active Substance: CENEGERMIN-BKBJ
  3. TADALAFIL [Concomitant]
     Active Substance: TADALAFIL
  4. LOSARTAN POTASSIUM [Concomitant]
     Active Substance: LOSARTAN POTASSIUM
  5. CARVEDILOL [Concomitant]
     Active Substance: CARVEDILOL
  6. ALBUTEROL SULFATE [Concomitant]
     Active Substance: ALBUTEROL SULFATE
  7. ACETAMINOPHEN [Concomitant]
     Active Substance: ACETAMINOPHEN
  8. SIMVASTATIN [Concomitant]
     Active Substance: SIMVASTATIN
  9. METFORMIN HYDROCHLORIDE [Concomitant]
     Active Substance: METFORMIN HYDROCHLORIDE
  10. GABAPENTIN [Concomitant]
     Active Substance: GABAPENTIN
  11. NITROGLYCERIN [Concomitant]
     Active Substance: NITROGLYCERIN

REACTIONS (3)
  - Neck injury [Unknown]
  - Therapy interrupted [Unknown]
  - Eye pain [Unknown]

NARRATIVE: CASE EVENT DATE: 20250515
